FAERS Safety Report 5980369-7 (Version None)
Quarter: 2008Q4

REPORT INFORMATION
  Report Type: 
  Country: None (occurrence: None)
  Receive Date: 20081205
  Receipt Date: 20071101
  Transmission Date: 20090506
  Serious: No
  Sender: FDA-Public Use
  Company Number: A0690959A

PATIENT
  Age: 82 Year
  Sex: Female

DRUGS (1)
  1. COMMIT [Suspect]
     Dates: start: 20071031

REACTIONS (3)
  - DIZZINESS [None]
  - EAR DISCOMFORT [None]
  - HYPOACUSIS [None]
